FAERS Safety Report 8899083 (Version 6)
Quarter: 2014Q1

REPORT INFORMATION
  Report Type: Spontaneous
  Country: US (occurrence: US)
  Receive Date: 20121109
  Receipt Date: 20140311
  Transmission Date: 20141002
  Serious: Yes (Hospitalization, Other)
  Sender: FDA-Public Use
  Company Number: US-MERCK-1211USA003755

PATIENT
  Sex: Female
  Weight: 73.92 kg

DRUGS (12)
  1. FOSAMAX [Suspect]
     Indication: OSTEOPOROSIS
     Dosage: 70 MG, QW
     Route: 048
     Dates: start: 20010601, end: 201101
  2. FOSAMAX [Suspect]
     Indication: OSTEOPOROSIS PROPHYLAXIS
     Dosage: 70 MG, DAILY
     Route: 048
     Dates: start: 200106
  3. ALENDRONATE SODIUM [Suspect]
     Dosage: 70 MG, UNK
  4. ACTONEL [Concomitant]
     Indication: OSTEOPOROSIS
  5. CALCIUM CARBONATE [Concomitant]
     Indication: OSTEOPOROSIS
  6. VITAMIN D (UNSPECIFIED) [Concomitant]
     Indication: OSTEOPOROSIS
     Dosage: 2000-6000 IU, QD
  7. METHOTREXATE [Concomitant]
     Indication: POLYMYOSITIS
     Dosage: 5-7.5 MG WEEKLY
  8. PREDNISONE [Concomitant]
     Indication: POLYMYOSITIS
     Dosage: 5-10 MG, QD
  9. IMURAN (AZATHIOPRINE) [Concomitant]
     Indication: POLYMYOSITIS
  10. PREMPRO [Concomitant]
     Indication: OSTEOPOROSIS PROPHYLAXIS
     Dosage: 0.625/2.5 MG DAILY
  11. POSTURE D [Concomitant]
     Indication: OSTEOPOROSIS PROPHYLAXIS
  12. HYDROCHLOROTHIAZIDE [Concomitant]
     Indication: FLUID RETENTION
     Dosage: 12.5 MG, DAILY

REACTIONS (36)
  - Intramedullary rod insertion [Unknown]
  - Osteonecrosis [Unknown]
  - Hip arthroplasty [Unknown]
  - Hypokalaemia [Unknown]
  - Femur fracture [Recovered/Resolved]
  - Femur fracture [Unknown]
  - Adverse event [Unknown]
  - Cataract operation [Unknown]
  - Cataract [Unknown]
  - Eye operation [Unknown]
  - Bursitis [Unknown]
  - Fall [Unknown]
  - Osteoarthritis [Unknown]
  - Fall [Unknown]
  - Hypertension [Unknown]
  - Urinary tract infection [Unknown]
  - Cervical dysplasia [Unknown]
  - Dysthymic disorder [Unknown]
  - Depression [Unknown]
  - Fatigue [Unknown]
  - Decreased appetite [Unknown]
  - Blood cholesterol increased [Unknown]
  - Neutropenia [Unknown]
  - Anaemia [Unknown]
  - Drug administration error [Unknown]
  - Pyrexia [Unknown]
  - Muscle spasms [Unknown]
  - Pain in extremity [Unknown]
  - Nausea [Unknown]
  - Arthralgia [Unknown]
  - Pain in extremity [Unknown]
  - Pain in extremity [Unknown]
  - Pain in extremity [Unknown]
  - Alopecia [Unknown]
  - Drug ineffective [Unknown]
  - Back pain [Unknown]
